FAERS Safety Report 4317284-0 (Version None)
Quarter: 2004Q1

REPORT INFORMATION
  Report Type: 
  Country: None (occurrence: None)
  Receive Date: 20040312
  Receipt Date: 20040303
  Transmission Date: 20041129
  Serious: Yes (Life-Threatening, Other)
  Sender: FDA-Public Use
  Company Number: JP-JNJFOC-20040301453

PATIENT
  Age: 62 Year
  Sex: Female

DRUGS (6)
  1. RISPERDAL [Suspect]
     Indication: DELUSION
     Dosage: SEE IMAGE
     Route: 048
  2. RISPERDAL [Suspect]
     Indication: HALLUCINATION
     Dosage: SEE IMAGE
     Route: 048
  3. FLUNITRAZEPAM (FLUNITRAZEPAM) [Concomitant]
  4. ADRENOCORTICAL HORMONE PREPARATIONS (CORTICOTROPIN) [Concomitant]
  5. ANTIBIOTIC PREPARATIONS (ANTIBIOTICS) [Concomitant]
  6. DIURETICS (DIURETICS) [Concomitant]

REACTIONS (2)
  - LEUKOPENIA [None]
  - ROAD TRAFFIC ACCIDENT [None]
